FAERS Safety Report 4819862-9 (Version None)
Quarter: 2005Q4

REPORT INFORMATION
  Report Type: 
  Country: None (occurrence: None)
  Receive Date: 20051102
  Receipt Date: 20051021
  Transmission Date: 20060501
  Serious: Yes (Death, Hospitalization)
  Sender: FDA-Public Use
  Company Number: 12731

PATIENT
  Age: 76 Year
  Sex: Male
  Weight: 85 kg

DRUGS (7)
  1. ASPIRIN [Suspect]
     Indication: PROPHYLAXIS
     Dosage: 75 MG QD PO
     Route: 048
     Dates: start: 20040527
  2. GTN-S [Suspect]
     Dosage: 40 MICROGRAM
  3. DICLOFENAC [Suspect]
     Indication: BACK PAIN
     Dosage: 50 MG TID PO
     Route: 048
     Dates: start: 20050308
  4. CO-TENIDONE [Concomitant]
  5. SIMVASTATIN [Concomitant]
  6. RAMIPRIL [Concomitant]
  7. ASPIRIN [Concomitant]

REACTIONS (5)
  - ABDOMINAL PAIN [None]
  - EMPHYSEMA [None]
  - FALL [None]
  - GASTROINTESTINAL HAEMORRHAGE [None]
  - URINARY RETENTION [None]
